FAERS Safety Report 9530158 (Version 1)
Quarter: 2013Q3

REPORT INFORMATION
  Report Type: Spontaneous
  Country: GB (occurrence: GB)
  Receive Date: 20130917
  Receipt Date: 20130917
  Transmission Date: 20140515
  Serious: Yes (Hospitalization)
  Sender: FDA-Public Use
  Company Number: PHHY2013GB099332

PATIENT
  Age: 75 Year
  Sex: Male

DRUGS (9)
  1. CLOPIDOGREL [Suspect]
     Indication: ACUTE MYOCARDIAL INFARCTION
     Dosage: 75 MG
     Route: 048
  2. ACETYLSALICYLIC ACID [Suspect]
     Indication: ACUTE MYOCARDIAL INFARCTION
     Dosage: 75 MG
     Route: 048
  3. PANTOPRAZOLE [Concomitant]
  4. EZETIMIBE/SIMVASTATIN [Concomitant]
  5. FINASTERIDE [Concomitant]
  6. GLYCERYL TRINITRATE [Concomitant]
  7. BISOPROLOL [Concomitant]
  8. RAMIPRIL [Concomitant]
  9. BENDROFLUMETHIAZIDE [Concomitant]

REACTIONS (2)
  - Rectal haemorrhage [Recovered/Resolved]
  - Melaena [Recovered/Resolved]
